FAERS Safety Report 9644456 (Version 1)
Quarter: 2013Q4

REPORT INFORMATION
  Report Type: Spontaneous
  Country: US (occurrence: US)
  Receive Date: 20131025
  Receipt Date: 20131025
  Transmission Date: 20140711
  Serious: Yes (Hospitalization)
  Sender: FDA-Public Use
  Company Number: US-ROCHE-1291601

PATIENT
  Age: 47 Year
  Sex: Female

DRUGS (3)
  1. HERCEPTIN [Suspect]
     Indication: BRAIN NEOPLASM MALIGNANT
     Route: 037
     Dates: start: 20130917, end: 20130927
  2. TYKERB [Suspect]
     Indication: NEOPLASM MALIGNANT
     Route: 065
     Dates: start: 20130508
  3. TOPOTECAN [Suspect]
     Indication: BRAIN NEOPLASM MALIGNANT
     Route: 065
     Dates: start: 20130917, end: 20130927

REACTIONS (4)
  - Dysarthria [Recovering/Resolving]
  - Neoplasm [Recovering/Resolving]
  - Disorientation [Recovering/Resolving]
  - Hypophagia [Recovering/Resolving]
